FAERS Safety Report 7342585-1 (Version None)
Quarter: 2011Q1

REPORT INFORMATION
  Report Type: 
  Country: None (occurrence: None)
  Receive Date: 20110310
  Receipt Date: 20100908
  Transmission Date: 20110831
  Serious: Yes (Death)
  Sender: FDA-Public Use
  Company Number: US-BAYER-201015951NA

PATIENT
  Sex: Female
  Weight: 70.295 kg

DRUGS (10)
  1. CYTOMEL [Concomitant]
     Indication: THYROID DISORDER
     Dosage: UNK
     Route: 048
     Dates: start: 20070821, end: 20080121
  2. YASMIN [Suspect]
     Indication: MENSTRUATION IRREGULAR
     Dosage: UNK
     Route: 048
     Dates: start: 20051130, end: 20080201
  3. EFFEXOR [Concomitant]
     Indication: DEPRESSION
     Dosage: UNK
     Route: 048
     Dates: start: 20050210, end: 20080121
  4. RISPERDAL [Concomitant]
     Dosage: 0.5 MG, UNK
     Route: 048
     Dates: start: 20050210, end: 20080121
  5. ACETAMINOPHEN [Concomitant]
     Dosage: UNK UNK, PRN
     Route: 048
     Dates: start: 20060101, end: 20080101
  6. TRAZODONE HCL [Concomitant]
     Dosage: 50 MG, UNK
     Dates: start: 20060830, end: 20080121
  7. MULTI-VITAMIN [Concomitant]
     Dosage: UNK
     Route: 048
     Dates: start: 20070101, end: 20080201
  8. GEODON [Concomitant]
     Dosage: 80 MG, UNK
     Route: 048
     Dates: start: 20070801, end: 20080201
  9. MOTRIN [Concomitant]
     Indication: PAIN IN EXTREMITY
     Dosage: 200 MG, PRN
     Dates: start: 20070918, end: 20080121
  10. CALCIUM ANTACID [Concomitant]
     Dosage: UNK
     Route: 048
     Dates: start: 20070101, end: 20080201

REACTIONS (1)
  - PULMONARY EMBOLISM [None]
